FAERS Safety Report 5743498-9 (Version None)
Quarter: 2008Q2

REPORT INFORMATION
  Report Type: 
  Country: None (occurrence: None)
  Receive Date: 20080519
  Receipt Date: 20080519
  Transmission Date: 20081010
  Serious: No
  Sender: FDA-Public Use
  Company Number: None

PATIENT
  Age: 25 Year
  Sex: Female
  Weight: 56.6996 kg

DRUGS (1)
  1. CREST PRO-HEALTH RINSE PROCTER + GAMBLE [Suspect]
     Indication: DENTAL DISORDER PROPHYLAXIS
     Dosage: TWICE DAILY DENTAL
     Route: 004
     Dates: start: 20080101, end: 20080516

REACTIONS (1)
  - TOOTH DISCOLOURATION [None]
